FAERS Safety Report 7207514-X (Version None)
Quarter: 2010Q4

REPORT INFORMATION
  Report Type: 
  Country: None (occurrence: None)
  Receive Date: 20101221
  Receipt Date: 20101208
  Transmission Date: 20110411
  Serious: Yes (Hospitalization)
  Sender: FDA-Public Use
  Company Number: TPH-00308

PATIENT
  Age: 30 Year
  Sex: Female

DRUGS (1)
  1. TRIQUILAR (ETHINYLESTRADIOL + LEVONORGESTREL) COATED TABLET [Suspect]
     Indication: CONTRACEPTION
     Dosage: 1 DF, QD ORAL
     Route: 048
     Dates: start: 20080801, end: 20101118

REACTIONS (1)
  - HEPATIC FUNCTION ABNORMAL [None]
